FAERS Safety Report 4282545-0 (Version None)
Quarter: 2004Q1

REPORT INFORMATION
  Report Type: 
  Country: None (occurrence: None)
  Receive Date: 20040129
  Receipt Date: 20040116
  Transmission Date: 20041129
  Serious: Yes (Hospitalization, Other)
  Sender: FDA-Public Use
  Company Number: 2003013707

PATIENT
  Age: 46 Year
  Sex: Male
  Weight: 122.4712 kg

DRUGS (2)
  1. VIAGRA [Suspect]
     Indication: ILL-DEFINED DISORDER
     Dosage: 50  MG (PRN), ORAL
     Route: 048
     Dates: start: 20020101, end: 20020101
  2. ORAL ANTIDIABETICS [Concomitant]

REACTIONS (2)
  - ARTERIAL OCCLUSIVE DISEASE [None]
  - CHEST PAIN [None]
